FAERS Safety Report 11998277 (Version 1)
Quarter: 2016Q1

REPORT INFORMATION
  Report Type: Spontaneous
  Country: US (occurrence: US)
  Receive Date: 20160203
  Receipt Date: 20160203
  Transmission Date: 20160526
  Serious: No
  Sender: FDA-Public Use
  Company Number: US-ASTRAZENECA-2016SE08971

PATIENT
  Age: 819 Month
  Sex: Female

DRUGS (1)
  1. SYMBICORT [Suspect]
     Active Substance: BUDESONIDE\FORMOTEROL FUMARATE DIHYDRATE
     Indication: CHRONIC OBSTRUCTIVE PULMONARY DISEASE
     Dosage: 160 4.5 MCG, 2 PUFFS TWO TIMES A DAY
     Route: 055
     Dates: start: 20160118

REACTIONS (4)
  - Pain [Unknown]
  - Back pain [Unknown]
  - Cardiac discomfort [Unknown]
  - Dysarthria [Unknown]

NARRATIVE: CASE EVENT DATE: 201601
